FAERS Safety Report 11208068 (Version 1)
Quarter: 2015Q2

REPORT INFORMATION
  Report Type: Report from Study
  Country: US (occurrence: US)
  Receive Date: 20150622
  Receipt Date: 20150622
  Transmission Date: 20150821
  Serious: No
  Sender: FDA-Public Use
  Company Number: US-ABBVIE-15P-163-1371113-00

PATIENT
  Age: 56 Year
  Sex: Female

DRUGS (2)
  1. VIEKIRA PAK [Suspect]
     Active Substance: DASABUVIR\OMBITASVIR\PARITAPREVIR\RITONAVIR
     Indication: PRODUCT USED FOR UNKNOWN INDICATION
     Dosage: 12.5/75/50; PACKAGED WITH DASABUVIR 250 MG, TWICE DAILY
     Route: 065
     Dates: start: 20150209
  2. MODERIBA [Suspect]
     Active Substance: RIBAVIRIN
     Indication: HEPATITIS C
     Dosage: 3 TABS IN THE AM; 2 TABS IN THE PM
     Route: 065
     Dates: start: 20150209

REACTIONS (5)
  - Diarrhoea [Not Recovered/Not Resolved]
  - Heart rate increased [Recovering/Resolving]
  - Tendonitis [Not Recovered/Not Resolved]
  - Blood pressure increased [Recovering/Resolving]
  - Blood thyroid stimulating hormone decreased [Unknown]

NARRATIVE: CASE EVENT DATE: 20150318
